FAERS Safety Report 17712351 (Version 1)
Quarter: 2020Q2

REPORT INFORMATION
  Report Type: Spontaneous
  Country: FR (occurrence: FR)
  Receive Date: 20200427
  Receipt Date: 20200427
  Transmission Date: 20200714
  Serious: Yes (Death, Hospitalization, Other)
  Sender: FDA-Public Use
  Company Number: FR-AMGEN-FRASP2020065709

PATIENT

DRUGS (1)
  1. PANITUMUMAB [Suspect]
     Active Substance: PANITUMUMAB
     Indication: SQUAMOUS CELL CARCINOMA
     Dosage: 6 MILLIGRAM/KILOGRAM, Q2WK (FOR AT LEAST 1 HOUR)
     Route: 042

REACTIONS (23)
  - Therapeutic product effect incomplete [Unknown]
  - Paronychia [Unknown]
  - Hypomagnesaemia [Unknown]
  - Acne [Unknown]
  - Drug eruption [Unknown]
  - Dermatosis [Unknown]
  - Xerosis [Unknown]
  - Mucosal inflammation [Unknown]
  - Asthenia [Unknown]
  - Death [Fatal]
  - Actinic keratosis [Unknown]
  - Genital abscess [Unknown]
  - Folliculitis [Unknown]
  - Skin fissures [Unknown]
  - Hypertrichosis [Unknown]
  - Off label use [Unknown]
  - Skin disorder [Unknown]
  - Radiation skin injury [Unknown]
  - Disease progression [Unknown]
  - Photosensitivity reaction [Unknown]
  - Conjunctivitis [Unknown]
  - Hypophosphataemia [Unknown]
  - Vomiting [Unknown]
